FAERS Safety Report 4873654-3 (Version None)
Quarter: 2006Q1

REPORT INFORMATION
  Report Type: 
  Country: None (occurrence: None)
  Receive Date: 20060103
  Receipt Date: 20060103
  Transmission Date: 20060701
  Serious: Yes (Life-Threatening, Hospitalization, Disabling)
  Sender: FDA-Public Use
  Company Number: None

PATIENT
  Age: 77 Year
  Sex: Female
  Weight: 57.6068 kg

DRUGS (10)
  1. FENTANYL [Suspect]
     Indication: HEADACHE
     Dosage: ONCE
     Dates: start: 20051019, end: 20051020
  2. ATENOLOL [Concomitant]
  3. ASPIRIN [Concomitant]
  4. PREDNISONE [Concomitant]
  5. FOLIC ACID [Concomitant]
  6. METHOTREXATE [Concomitant]
  7. PROTONIX [Concomitant]
  8. EFFEXOR XR [Concomitant]
  9. COUMADIN [Concomitant]
  10. CAPOTEN [Concomitant]

REACTIONS (4)
  - COMA [None]
  - CONFUSIONAL STATE [None]
  - DEPRESSED LEVEL OF CONSCIOUSNESS [None]
  - OVERDOSE [None]
